FAERS Safety Report 7650860-6 (Version None)
Quarter: 2011Q3

REPORT INFORMATION
  Report Type: 
  Country: None (occurrence: None)
  Receive Date: 20110802
  Receipt Date: 20110722
  Transmission Date: 20111222
  Serious: Yes (Hospitalization, Other)
  Sender: FDA-Public Use
  Company Number: NO-PFIZER INC-2011173474

PATIENT
  Age: 61 Year
  Sex: Female

DRUGS (10)
  1. TRILAFON [Concomitant]
     Indication: SCHIZOPHRENIA
     Dosage: 108.2 MG, EVERY 3 WEEKS
     Route: 030
  2. PARALGIN FORTE [Concomitant]
     Indication: PAIN
     Dosage: 1 TAB MORNING, 2 TAB EVENING
     Route: 048
  3. FOLIC ACID [Concomitant]
     Indication: HYPOVITAMINOSIS
     Dosage: 1 MG, 1 IN 1 DAILY
     Route: 048
  4. PANTOPRAZOLE [Suspect]
     Indication: PEPTIC ULCER HAEMORRHAGE
     Dosage: 40 MG, 1X/DAY
     Route: 048
     Dates: start: 20101201
  5. FERROUS SULFATE [Concomitant]
     Indication: IRON DEFICIENCY
     Dosage: 200 MG, 2 IN 1 DAILY
     Route: 048
  6. PANTOPRAZOLE [Suspect]
     Dosage: 40 MG, 2X/DAY
     Route: 048
  7. LEVOTHYROXINE SODIUM [Concomitant]
     Indication: HYPOTHYROIDISM
     Dosage: 100 UG, 1X/DAY
     Route: 048
  8. PANTOPRAZOLE [Suspect]
     Dosage: UNK
     Route: 048
  9. LACTULOSE [Concomitant]
     Indication: CONSTIPATION
     Dosage: 20 ML, 1 IN 1 DAILY
     Route: 048
  10. VITAMIN B COMPLEX CAP [Concomitant]
     Route: 048

REACTIONS (3)
  - DELIRIUM [None]
  - CONFUSIONAL STATE [None]
  - DISORIENTATION [None]
